FAERS Safety Report 4629029-5 (Version None)
Quarter: 2005Q2

REPORT INFORMATION
  Report Type: 
  Country: None (occurrence: None)
  Receive Date: 20050405
  Receipt Date: 20050405
  Transmission Date: 20051028
  Serious: Yes (Hospitalization)
  Sender: FDA-Public Use
  Company Number: None

PATIENT
  Sex: Male
  Weight: 106.1417 kg

DRUGS (10)
  1. ESTRAMUSTINE 140MG [Suspect]
     Indication: PROSTATE CANCER
     Dosage: 140MG BID PO
     Route: 048
     Dates: start: 20031007, end: 20031205
  2. DOCETAXEL 92MG [Suspect]
     Indication: PROSTATE CANCER
     Dosage: 92MG WEEKLY IV
     Route: 042
     Dates: start: 20031008, end: 20031207
  3. DECADRON [Concomitant]
  4. PRINIVIL [Concomitant]
  5. LASIX [Concomitant]
  6. CELEBREX [Concomitant]
  7. VICODIN [Concomitant]
  8. ELIGARD [Concomitant]
  9. COUMADIN [Concomitant]
  10. ANTEMET [Concomitant]

REACTIONS (2)
  - SYNCOPE [None]
  - VENTRICULAR TACHYCARDIA [None]
